FAERS Safety Report 18120922 (Version 2)
Quarter: 2020Q3

REPORT INFORMATION
  Report Type: Spontaneous
  Country: US (occurrence: US)
  Receive Date: 20200806
  Receipt Date: 20200814
  Transmission Date: 20201103
  Serious: Yes (Life-Threatening, Disabling, Other)
  Sender: FDA-Public Use
  Company Number: US-009507513-2008USA000433

PATIENT
  Age: 22 Year
  Sex: Female

DRUGS (6)
  1. PREVYMIS [Suspect]
     Active Substance: LETERMOVIR
     Indication: PROPHYLAXIS AGAINST TRANSPLANT REJECTION
     Dosage: 240 MILLIGRAM DAILY; STRENGTH: 240/12 MG/ML
     Route: 042
     Dates: start: 20200714
  2. MEROPENEM. [Concomitant]
     Active Substance: MEROPENEM
  3. VANCOMYCIN [Concomitant]
     Active Substance: VANCOMYCIN
  4. SODIUM CHLORIDE. [Suspect]
     Active Substance: SODIUM CHLORIDE
     Indication: DEHYDRATION
     Dosage: UNK
     Dates: start: 20200729, end: 20200729
  5. AZITHRO [Concomitant]
     Active Substance: AZITHROMYCIN
  6. ACYCLOVIR. [Concomitant]
     Active Substance: ACYCLOVIR

REACTIONS (3)
  - Dehydration [Not Recovered/Not Resolved]
  - Fungal skin infection [Not Recovered/Not Resolved]
  - Pulmonary oedema [Recovered/Resolved]

NARRATIVE: CASE EVENT DATE: 202007
